FAERS Safety Report 4830960-6 (Version None)
Quarter: 2005Q4

REPORT INFORMATION
  Report Type: 
  Country: None (occurrence: None)
  Receive Date: 20051114
  Receipt Date: 20051027
  Transmission Date: 20060501
  Serious: Yes (Hospitalization)
  Sender: FDA-Public Use
  Company Number: COT_0114_2005

PATIENT
  Age: 58 Year
  Sex: Female
  Weight: 70 kg

DRUGS (4)
  1. VENTAVIS [Suspect]
     Indication: PULMONARY HYPERTENSION
     Dosage: 30 MCG QDAY IH
     Route: 055
     Dates: start: 20011228
  2. ACENOCOUMAROL [Concomitant]
  3. DILTIAZEM HCL [Concomitant]
  4. FUROSEMIDE [Concomitant]

REACTIONS (1)
  - DIZZINESS [None]
